FAERS Safety Report 19358114 (Version 1)
Quarter: 2021Q2

REPORT INFORMATION
  Report Type: Spontaneous
  Country: US (occurrence: US)
  Receive Date: 20210601
  Receipt Date: 20210601
  Transmission Date: 20210717
  Serious: No
  Sender: FDA-Public Use
  Company Number: US-TEVA-2021-US-1912846

PATIENT
  Sex: Female

DRUGS (1)
  1. ALBUTEROL SULFATE. [Suspect]
     Active Substance: ALBUTEROL SULFATE
     Dosage: DOSAGE FORM: INHALATION ? AEROSOL
     Route: 055
     Dates: start: 202105

REACTIONS (2)
  - Device delivery system issue [Unknown]
  - COVID-19 [Unknown]
